FAERS Safety Report 9321187 (Version 1)
Quarter: 2013Q2

REPORT INFORMATION
  Report Type: Spontaneous
  Country: US (occurrence: US)
  Receive Date: 20130531
  Receipt Date: 20130531
  Transmission Date: 20140414
  Serious: No
  Sender: FDA-Public Use
  Company Number: US-BAYER-2013-066916

PATIENT
  Age: 39 Year
  Sex: Male

DRUGS (2)
  1. AVELOX I.V. [Suspect]
     Indication: PNEUMONIA
     Dosage: UNK
     Dates: start: 20130521, end: 20130523
  2. AVELOX [Suspect]
     Indication: PNEUMONIA
     Dosage: UNK
     Dates: start: 20130525, end: 20130528

REACTIONS (2)
  - Ageusia [Not Recovered/Not Resolved]
  - Hyposmia [Not Recovered/Not Resolved]
